FAERS Safety Report 19903615 (Version 3)
Quarter: 2021Q4

REPORT INFORMATION
  Report Type: Other
  Country: US (occurrence: US)
  Receive Date: 20211001
  Receipt Date: 20211201
  Transmission Date: 20220303
  Serious: No
  Sender: FDA-Public Use
  Company Number: US-NEUROCRINE BIOSCIENCES INC.-2021NBI05399

PATIENT

DRUGS (3)
  1. INGREZZA [Suspect]
     Active Substance: VALBENAZINE
     Indication: Tardive dyskinesia
     Dosage: 80 MILLIGRAM, QD
     Route: 048
     Dates: start: 2021
  2. INGREZZA [Suspect]
     Active Substance: VALBENAZINE
     Dosage: 80 MILLIGRAM, QD
     Route: 048
     Dates: start: 20201023, end: 20201028
  3. INGREZZA [Suspect]
     Active Substance: VALBENAZINE
     Dosage: 40 MILLIGRAM, QD
     Route: 048
     Dates: start: 20201029, end: 20210321

REACTIONS (2)
  - Urinary tract infection [Unknown]
  - Blood potassium decreased [Recovering/Resolving]
